FAERS Safety Report 4286166-5 (Version None)
Quarter: 2004Q1

REPORT INFORMATION
  Report Type: 
  Country: None (occurrence: None)
  Receive Date: 20040204
  Receipt Date: 20040204
  Transmission Date: 20041129
  Serious: No
  Sender: FDA-Public Use
  Company Number: None

PATIENT
  Age: 12 Year
  Sex: Male
  Weight: 72.5755 kg

DRUGS (2)
  1. ZOLOFT [Suspect]
     Indication: MAJOR DEPRESSION
     Dosage: 1 TEASP. 2 TEASP. ORAL
     Route: 048
     Dates: start: 20030509, end: 20030608
  2. PAXIL [Suspect]
     Indication: MAJOR DEPRESSION
     Dosage: 1/2 TABLET 1 TAB
     Route: 048
     Dates: start: 20030609, end: 20030805

REACTIONS (4)
  - AGGRESSION [None]
  - AGITATION [None]
  - HYPERSENSITIVITY [None]
  - INSOMNIA [None]
